FAERS Safety Report 17795812 (Version 1)
Quarter: 2020Q2

REPORT INFORMATION
  Report Type: Spontaneous
  Country: US (occurrence: US)
  Receive Date: 20200516
  Receipt Date: 20200516
  Transmission Date: 20200714
  Serious: No
  Sender: FDA-Public Use
  Company Number: NVSC2020US133153

PATIENT
  Sex: Male

DRUGS (1)
  1. TAFINLAR [Suspect]
     Active Substance: DABRAFENIB MESYLATE
     Indication: BRAIN NEOPLASM BENIGN
     Dosage: 100 MG, BID (EVERY 12 HOURS)
     Route: 048
     Dates: start: 20191112

REACTIONS (2)
  - Erythema [Unknown]
  - Dry skin [Unknown]
